FAERS Safety Report 5530974-7 (Version None)
Quarter: 2007Q4

REPORT INFORMATION
  Report Type: 
  Country: None (occurrence: None)
  Receive Date: 20071130
  Receipt Date: 20071120
  Transmission Date: 20080405
  Serious: Yes (Other)
  Sender: FDA-Public Use
  Company Number: US-PFIZER INC-2007098586

PATIENT
  Sex: Female
  Weight: 88.5 kg

DRUGS (15)
  1. NEURONTIN [Suspect]
     Indication: HYPOAESTHESIA
  2. LYRICA [Suspect]
     Indication: SPINAL CORD INJURY
     Dates: start: 20060101, end: 20071119
  3. LORAZEPAM [Suspect]
     Dosage: DAILY DOSE:18MG
  4. PROMETHAZINE [Concomitant]
  5. BUPROPION HCL [Concomitant]
  6. ROBAXIN [Concomitant]
  7. HYDROCODONE BITARTRATE [Concomitant]
     Indication: PAIN
  8. FUROSEMIDE [Concomitant]
  9. KLOR-CON [Concomitant]
  10. GLYBURIDE [Concomitant]
  11. LIPITOR [Concomitant]
  12. VYTORIN [Concomitant]
  13. ESTRADIOL [Concomitant]
  14. INSULIN [Concomitant]
  15. DURAGESIC-100 [Concomitant]

REACTIONS (14)
  - ADVERSE DRUG REACTION [None]
  - ARTHRITIS [None]
  - CONVULSION [None]
  - DETOXIFICATION [None]
  - DISCOMFORT [None]
  - FEELING DRUNK [None]
  - HEADACHE [None]
  - ILL-DEFINED DISORDER [None]
  - INFECTION [None]
  - INSOMNIA [None]
  - NECK PAIN [None]
  - NERVE INJURY [None]
  - PYREXIA [None]
  - TENDONITIS [None]
